FAERS Safety Report 7780931-5 (Version None)
Quarter: 2011Q3

REPORT INFORMATION
  Report Type: 
  Country: None (occurrence: None)
  Receive Date: 20110927
  Receipt Date: 20110920
  Transmission Date: 20111222
  Serious: Yes (Other)
  Sender: FDA-Public Use
  Company Number: US-JNJFOC-20110710566

PATIENT
  Sex: Female
  Weight: 50.8 kg

DRUGS (3)
  1. SYNTHROID [Concomitant]
     Indication: HYPOTHYROIDISM
     Route: 048
  2. DOXORUBICIN HCL [Suspect]
     Indication: UTERINE CANCER
     Route: 042
     Dates: start: 20101101, end: 20110401
  3. ACTONEL [Concomitant]
     Indication: BONE DISORDER
     Route: 065

REACTIONS (8)
  - FURUNCLE [None]
  - PYREXIA [None]
  - OFF LABEL USE [None]
  - CHILLS [None]
  - URTICARIA [None]
  - INFECTION [None]
  - IMMUNE SYSTEM DISORDER [None]
  - APHTHOUS STOMATITIS [None]
